FAERS Safety Report 8915271 (Version 1)
Quarter: 2012Q4

REPORT INFORMATION
  Report Type: 
  Country: DE (occurrence: DE)
  Receive Date: 20121119
  Receipt Date: 20121119
  Transmission Date: 20130627
  Serious: Yes (Hospitalization, Other)
  Sender: FDA-Public Use
  Company Number: DE-ELI_LILLY_AND_COMPANY-DE201211002722

PATIENT
  Age: 58 Year
  Sex: Male

DRUGS (7)
  1. FORSTEO [Suspect]
     Indication: OSTEOPOROSIS
     Dosage: UNK, qd
     Route: 058
     Dates: start: 20111011
  2. TESTOSTERONE [Concomitant]
  3. MARCUMAR [Concomitant]
  4. CORTISON [Concomitant]
     Dosage: 7.5 mg, UNK
     Dates: start: 2006
  5. DICLOFENAC [Concomitant]
  6. CALCIUM W/VITAMIN D NOS [Concomitant]
     Dosage: UNK UNK, bid
  7. VIGANTOLETTEN [Concomitant]
     Dosage: UNK, qd

REACTIONS (1)
  - Myocardial infarction [Unknown]
